FAERS Safety Report 15867576 (Version 1)
Quarter: 2019Q1

REPORT INFORMATION
  Report Type: Spontaneous
  Country: US (occurrence: US)
  Receive Date: 20190125
  Receipt Date: 20190125
  Transmission Date: 20190417
  Serious: Yes (Death, Other)
  Sender: FDA-Public Use
  Company Number: US-ELI_LILLY_AND_COMPANY-US201901011705

PATIENT
  Sex: Female

DRUGS (6)
  1. PACLITAXEL. [Concomitant]
     Active Substance: PACLITAXEL
     Dosage: 60 MG/M2, UNK
  2. DURVALUMAB. [Concomitant]
     Active Substance: DURVALUMAB
     Indication: TONGUE NEOPLASM MALIGNANT STAGE UNSPECIFIED
     Dosage: 20 MG/KG, UNK
  3. CETUXIMAB. [Suspect]
     Active Substance: CETUXIMAB
     Indication: TONGUE NEOPLASM MALIGNANT STAGE UNSPECIFIED
     Route: 065
  4. TREMELIMUMAB. [Concomitant]
     Active Substance: TREMELIMUMAB
     Indication: TONGUE NEOPLASM MALIGNANT STAGE UNSPECIFIED
     Dosage: 1 MG/KG, UNK
  5. PACLITAXEL. [Concomitant]
     Active Substance: PACLITAXEL
     Dosage: 80 MG/M2, UNK
  6. PACLITAXEL. [Concomitant]
     Active Substance: PACLITAXEL
     Indication: TONGUE NEOPLASM MALIGNANT STAGE UNSPECIFIED
     Dosage: 20 MG/M2, UNK

REACTIONS (4)
  - Death [Fatal]
  - Arterial haemorrhage [Unknown]
  - Off label use [Unknown]
  - Lymphadenopathy [Unknown]
